FAERS Safety Report 7962744-4 (Version None)
Quarter: 2011Q4

REPORT INFORMATION
  Report Type: 
  Country: None (occurrence: None)
  Receive Date: 20111207
  Receipt Date: 20111124
  Transmission Date: 20120403
  Serious: Yes (Disabling)
  Sender: FDA-Public Use
  Company Number: DK-MYLANLABS-2011S1024289

PATIENT
  Age: 56 Year
  Sex: Female

DRUGS (2)
  1. TAMOXIFEN CITRATE [Suspect]
     Indication: BREAST CANCER
     Dates: start: 20070101, end: 20091124
  2. RADIATION THERAPY [Concomitant]
     Indication: BREAST CANCER

REACTIONS (7)
  - FATIGUE [None]
  - APHASIA [None]
  - OSTEOPOROSIS [None]
  - MYALGIA [None]
  - TOOTH LOSS [None]
  - CEREBRAL THROMBOSIS [None]
  - HEMIPLEGIA [None]
